FAERS Safety Report 23501171 (Version 3)
Quarter: 2024Q1

REPORT INFORMATION
  Report Type: Spontaneous
  Country: US (occurrence: US)
  Receive Date: 20240208
  Receipt Date: 20240314
  Transmission Date: 20240410
  Serious: No
  Sender: FDA-Public Use
  Company Number: US-BRISTOL-MYERS SQUIBB COMPANY-2024-020571

PATIENT
  Age: 59 Year
  Sex: Male
  Weight: 101.6 kg

DRUGS (3)
  1. REVLIMID [Suspect]
     Active Substance: LENALIDOMIDE
     Indication: Plasma cell myeloma
     Route: 048
  2. REVLIMID [Suspect]
     Active Substance: LENALIDOMIDE
  3. REVLIMID [Suspect]
     Active Substance: LENALIDOMIDE
     Dosage: FREQUENCY: 3WKSON,1WKOFF
     Route: 048

REACTIONS (4)
  - Ageusia [Recovering/Resolving]
  - Hiccups [Unknown]
  - Constipation [Recovering/Resolving]
  - Extra dose administered [Unknown]
